FAERS Safety Report 19239651 (Version 2)
Quarter: 2021Q2

REPORT INFORMATION
  Report Type: Spontaneous
  Country: RO (occurrence: RO)
  Receive Date: 20210511
  Receipt Date: 20210528
  Transmission Date: 20210717
  Serious: Yes (Other)
  Sender: FDA-Public Use
  Company Number: RO-SUN PHARMACEUTICAL INDUSTRIES LTD-2021RR-295836

PATIENT
  Age: 45 Year
  Sex: Female

DRUGS (14)
  1. PREDNISON SINTOFARM [Suspect]
     Active Substance: PREDNISONE
     Indication: SCLERODERMA
     Dosage: 5 MILLIGRAM, DAILY
     Route: 065
  2. MICOFENOLAT MOFETIL SANDOZ [Suspect]
     Active Substance: MYCOPHENOLATE MOFETIL
     Indication: COVID-19
  3. PENTOXIFILINA ZENTIVA [Suspect]
     Active Substance: PENTOXIFYLLINE
     Indication: PRE-EXISTING DISEASE
     Dosage: UNK
     Route: 065
  4. DOBUTAMINE [Concomitant]
     Active Substance: DOBUTAMINE HYDROCHLORIDE
     Indication: PRODUCT USED FOR UNKNOWN INDICATION
     Dosage: UNK
     Route: 065
  5. FUROSEMID ZENTIVA (FUROSEMIDE) [Suspect]
     Active Substance: FUROSEMIDE
     Indication: SCLERODERMA
     Dosage: 40 MILLIGRAM, DAILY
     Route: 065
  6. PENTOXIFILINA ZENTIVA [Suspect]
     Active Substance: PENTOXIFYLLINE
     Indication: COVID-19
  7. SORBIFER DURULES EGIS [Suspect]
     Active Substance: ASCORBIC ACID\FERROUS SULFATE
     Indication: SYSTEMIC SCLERODERMA
     Dosage: UNK
     Route: 065
  8. AZATHIOPRINE. [Suspect]
     Active Substance: AZATHIOPRINE
     Indication: SCLERODERMA
     Dosage: 1 TB DAILY
     Route: 065
  9. AZATHIOPRINE. [Suspect]
     Active Substance: AZATHIOPRINE
     Dosage: 50 MILLIGRAM, BID
     Route: 065
  10. ALPROSTADIL. [Concomitant]
     Active Substance: ALPROSTADIL
     Indication: PRODUCT USED FOR UNKNOWN INDICATION
     Dosage: UNK
     Route: 042
  11. MICOFENOLAT MOFETIL SANDOZ [Suspect]
     Active Substance: MYCOPHENOLATE MOFETIL
     Indication: PRE-EXISTING DISEASE
     Dosage: UNK
     Route: 065
  12. CARVEDILOL. [Concomitant]
     Active Substance: CARVEDILOL
     Indication: PRODUCT USED FOR UNKNOWN INDICATION
     Dosage: UNK
     Route: 065
  13. NEBILET BERLIN CHEMIE [Suspect]
     Active Substance: NEBIVOLOL HYDROCHLORIDE
     Indication: SCLERODERMA
     Dosage: 5 MILLIGRAM, DAILY
     Route: 065
  14. AZATHIOPRINE. [Suspect]
     Active Substance: AZATHIOPRINE
     Dosage: 50 MILLIGRAM, TID
     Route: 065

REACTIONS (6)
  - Condition aggravated [Unknown]
  - Impaired gastric emptying [Unknown]
  - Therapeutic product effect incomplete [Unknown]
  - Therapeutic product effect decreased [Unknown]
  - Oesophagitis [Unknown]
  - Off label use [Unknown]
